FAERS Safety Report 9644841 (Version 1)
Quarter: 2013Q4

REPORT INFORMATION
  Report Type: Spontaneous
  Country: US (occurrence: None)
  Receive Date: 20131023
  Receipt Date: 20131023
  Transmission Date: 20140711
  Serious: Yes (Hospitalization, Disabling)
  Sender: FDA-Public Use
  Company Number: None

PATIENT
  Age: 50 Year
  Sex: Male
  Weight: 84.37 kg

DRUGS (1)
  1. PRAVASTATIN [Suspect]
     Indication: BLOOD CHOLESTEROL INCREASED
     Dosage: ONE TABLET ONCE DAILY
     Route: 048
     Dates: start: 20130905, end: 20131003

REACTIONS (16)
  - Muscle spasms [None]
  - Muscle spasms [None]
  - Paraesthesia [None]
  - Dyspnoea [None]
  - Respiratory disorder [None]
  - Chest discomfort [None]
  - Palpitations [None]
  - Asthenia [None]
  - Dysarthria [None]
  - Amnesia [None]
  - Confusional state [None]
  - Panic attack [None]
  - Blood glucose abnormal [None]
  - Abdominal discomfort [None]
  - Chromaturia [None]
  - Fear [None]
